FAERS Safety Report 19920687 (Version 1)
Quarter: 2021Q4

REPORT INFORMATION
  Report Type: Report from Study
  Country: US (occurrence: US)
  Receive Date: 20211005
  Receipt Date: 20211005
  Transmission Date: 20220303
  Serious: No
  Sender: FDA-Public Use
  Company Number: US-NOVARTISTESTPH-NVSC2021US226602

PATIENT
  Sex: Male

DRUGS (2)
  1. ENTRESTO [Suspect]
     Active Substance: SACUBITRIL\VALSARTAN
     Indication: Product used for unknown indication
     Dosage: UNK,(1.5 YEARS UP UNTIL APRIL 2021)
     Route: 065
     Dates: end: 202104
  2. ENTRESTO [Suspect]
     Active Substance: SACUBITRIL\VALSARTAN
     Dosage: 50 MG, BID, (24/26MG)
     Route: 048
     Dates: start: 202106

REACTIONS (3)
  - Blood glucose increased [Unknown]
  - Rotator cuff syndrome [Unknown]
  - Cough [Unknown]
